FAERS Safety Report 11005819 (Version 2)
Quarter: 2017Q3

REPORT INFORMATION
  Report Type: Report from Study
  Country: US (occurrence: US)
  Receive Date: 20150409
  Receipt Date: 20170818
  Transmission Date: 20171127
  Serious: Yes (Hospitalization, Disabling, Other)
  Sender: FDA-Public Use
  Company Number: US-CELGENEUS-163-21880-14020733

PATIENT
  Age: 76 Year
  Sex: Male
  Weight: 100.79 kg

DRUGS (45)
  1. PROPRANOLOL HCL [Concomitant]
     Active Substance: PROPRANOLOL HYDROCHLORIDE
     Indication: ESSENTIAL TREMOR
     Route: 065
  2. ZOLEDRONIC ACID [Concomitant]
     Active Substance: ZOLEDRONIC ACID
     Indication: PLASMA CELL MYELOMA
     Route: 065
     Dates: start: 20121002
  3. KETOROLAC TROMETHAMINE. [Concomitant]
     Active Substance: KETOROLAC TROMETHAMINE
     Indication: PAIN
     Dosage: 40 MILLIGRAM
     Route: 048
  4. PRIMIDONE. [Concomitant]
     Active Substance: PRIMIDONE
     Indication: ESSENTIAL TREMOR
     Route: 065
  5. THIAMINE HCL [Concomitant]
     Indication: NEUROPATHY PERIPHERAL
     Dosage: 100 MILLIGRAM
     Route: 048
  6. TUMS [Concomitant]
     Active Substance: CALCIUM CARBONATE
     Indication: DYSPEPSIA
     Dosage: 1500 MILLIGRAM
     Route: 048
  7. REVLIMID [Suspect]
     Active Substance: LENALIDOMIDE
     Indication: PLASMA CELL MYELOMA
     Dosage: 10 MILLIGRAM
     Route: 048
     Dates: start: 20101209, end: 20150210
  8. ATIVAN [Concomitant]
     Active Substance: LORAZEPAM
     Indication: PARKINSON^S DISEASE
     Route: 048
     Dates: start: 20130514
  9. ESCITALOPRAM OXALATE. [Concomitant]
     Active Substance: ESCITALOPRAM OXALATE
     Indication: DEPRESSION
     Route: 065
  10. GABAPENTIN. [Concomitant]
     Active Substance: GABAPENTIN
     Indication: NEUROPATHY PERIPHERAL
     Dosage: 900 MILLIGRAM
     Route: 048
  11. THALOMID [Concomitant]
     Active Substance: THALIDOMIDE
     Indication: PLASMA CELL MYELOMA
     Dosage: 50 MILLIGRAM
     Route: 048
     Dates: start: 20100820, end: 20100826
  12. ESCITALOPRAM OXALATE. [Concomitant]
     Active Substance: ESCITALOPRAM OXALATE
     Indication: ANXIETY
     Route: 048
     Dates: start: 20121114
  13. MELOXICAM. [Concomitant]
     Active Substance: MELOXICAM
     Indication: PAIN
     Dosage: 15 MILLIGRAM
     Route: 048
  14. NIASPAN [Concomitant]
     Active Substance: NIACIN
     Indication: HYPERLIPIDAEMIA
     Dosage: 1000 MILLIGRAM
     Route: 048
  15. POTASSIUM CHLORIDE. [Concomitant]
     Active Substance: POTASSIUM CHLORIDE
     Indication: HYPOKALAEMIA
     Dosage: 10 MILLIEQUIVALENTS
     Route: 048
  16. DEXAMETHASONE. [Suspect]
     Active Substance: DEXAMETHASONE
     Indication: PLASMA CELL MYELOMA
     Dosage: 20 MILLIGRAM
     Route: 048
     Dates: start: 20101209, end: 20150210
  17. ZOLEDRONIC ACID [Concomitant]
     Active Substance: ZOLEDRONIC ACID
     Route: 065
     Dates: start: 20140212
  18. FISH OIL [Concomitant]
     Active Substance: FISH OIL
     Indication: HYPERLIPIDAEMIA
     Dosage: 1200 MILLIGRAM
     Route: 048
  19. FOLIC ACID. [Concomitant]
     Active Substance: FOLIC ACID
     Indication: PROPHYLAXIS
     Dosage: 1 MILLIGRAM
     Route: 048
  20. METHYLPHENIDATE HYDROCHLORIDE. [Concomitant]
     Active Substance: METHYLPHENIDATE HYDROCHLORIDE
     Indication: AMNESIA
     Dosage: 5 MILLIGRAM
     Route: 048
  21. NAMENDA [Concomitant]
     Active Substance: MEMANTINE HYDROCHLORIDE
     Indication: DEMENTIA
     Route: 065
  22. PRIMIDONE. [Concomitant]
     Active Substance: PRIMIDONE
     Indication: NEUROPATHY PERIPHERAL
     Dosage: 100 MILLIGRAM
     Route: 048
     Dates: end: 20130605
  23. SIMVASTATIN. [Concomitant]
     Active Substance: SIMVASTATIN
     Indication: HYPERLIPIDAEMIA
     Dosage: 20 MILLIGRAM
     Route: 048
  24. THALOMID [Concomitant]
     Active Substance: THALIDOMIDE
     Dosage: 200 MILLIGRAM
     Route: 048
     Dates: start: 20100910, end: 20101208
  25. HYDROCODONE/ACETAMINOPHEN [Concomitant]
     Active Substance: ACETAMINOPHEN\HYDROCODONE
     Indication: PAIN
     Dosage: 10-325MG(1-2 TABLETS)
     Route: 048
     Dates: start: 20130718
  26. JANTOVEN [Concomitant]
     Active Substance: WARFARIN SODIUM
     Indication: DEEP VEIN THROMBOSIS
     Route: 048
     Dates: start: 20131204
  27. LEVOTHROID [Concomitant]
     Active Substance: LEVOTHYROXINE SODIUM
     Indication: HYPOTHYROIDISM
     Dosage: 100 MICROGRAM
     Route: 048
  28. METHYLPHENIDATE HYDROCHLORIDE. [Concomitant]
     Active Substance: METHYLPHENIDATE HYDROCHLORIDE
     Indication: DEMENTIA
     Route: 065
  29. PROCHLORPERAZINE MALEATE. [Concomitant]
     Active Substance: PROCHLORPERAZINE MALEATE
     Indication: DEMENTIA
     Route: 065
  30. THALOMID [Concomitant]
     Active Substance: THALIDOMIDE
     Dosage: 150 MILLIGRAM
     Route: 048
     Dates: start: 20100903, end: 20100909
  31. DEXILANT [Concomitant]
     Active Substance: DEXLANSOPRAZOLE
     Indication: GASTROOESOPHAGEAL REFLUX DISEASE
     Dosage: 60 MILLIGRAM
     Route: 048
  32. FUROSEMIDE. [Concomitant]
     Active Substance: FUROSEMIDE
     Indication: PERIPHERAL SWELLING
     Dosage: 40 MILLIGRAM
     Route: 048
  33. NAMENDA [Concomitant]
     Active Substance: MEMANTINE HYDROCHLORIDE
     Indication: AMNESIA
     Dosage: 20 MILLIGRAM
     Route: 048
  34. PRIMIDONE. [Concomitant]
     Active Substance: PRIMIDONE
     Indication: ANXIETY
     Route: 065
  35. LOMOTIL [Concomitant]
     Active Substance: ATROPINE SULFATE\DIPHENOXYLATE HYDROCHLORIDE
     Indication: DIARRHOEA
     Route: 048
     Dates: start: 20131230
  36. PROPRANOLOL HCL [Concomitant]
     Active Substance: PROPRANOLOL HYDROCHLORIDE
     Indication: ATRIAL FIBRILLATION
     Dosage: 120 MILLIGRAM
     Route: 048
     Dates: start: 20120904
  37. PROCHLORPERAZINE MALEATE. [Concomitant]
     Active Substance: PROCHLORPERAZINE MALEATE
     Indication: AMNESIA
     Dosage: 40 MILLIGRAM
     Route: 048
  38. ZOFRAN [Concomitant]
     Active Substance: ONDANSETRON HYDROCHLORIDE
     Indication: NAUSEA
     Dosage: 24 MILLIGRAM
     Route: 048
  39. THALOMID [Concomitant]
     Active Substance: THALIDOMIDE
     Dosage: 100 MILLIGRAM
     Route: 048
     Dates: start: 20100827, end: 20100902
  40. SOMA [Concomitant]
     Active Substance: CARISOPRODOL
     Indication: NECK PAIN
     Dosage: 700 MILLIGRAM
     Route: 048
     Dates: start: 20121002
  41. ALLOPURINOL. [Concomitant]
     Active Substance: ALLOPURINOL
     Indication: GOUT
     Dosage: 300 MILLIGRAM
     Route: 048
  42. DICLOFENAC POTASSIUM. [Concomitant]
     Active Substance: DICLOFENAC POTASSIUM
     Indication: PAIN
     Dosage: 100 MILLIGRAM
     Route: 048
  43. TUMS [Concomitant]
     Active Substance: CALCIUM CARBONATE
     Indication: MINERAL SUPPLEMENTATION
     Route: 065
  44. VITAMIN D3 [Concomitant]
     Active Substance: CHOLECALCIFEROL
     Indication: VITAMIN D DEFICIENCY
     Dosage: 5000 IU (INTERNATIONAL UNIT)
     Route: 048
  45. ZOFRAN [Concomitant]
     Active Substance: ONDANSETRON HYDROCHLORIDE
     Indication: VOMITING
     Route: 065

REACTIONS (6)
  - Pneumonia [Recovered/Resolved]
  - Mental status changes [Unknown]
  - Respiratory failure [Recovered/Resolved]
  - Pancytopenia [Recovered/Resolved]
  - Atrial fibrillation [Recovered/Resolved]
  - Febrile neutropenia [Unknown]

NARRATIVE: CASE EVENT DATE: 20131229
